FAERS Safety Report 21410579 (Version 1)
Quarter: 2022Q4

REPORT INFORMATION
  Report Type: Spontaneous
  Country: AU (occurrence: AU)
  Receive Date: 20221005
  Receipt Date: 20221005
  Transmission Date: 20230113
  Serious: Yes (Death, Hospitalization)
  Sender: FDA-Public Use
  Company Number: AU-NOVARTISPH-NVSC2021AU290110

PATIENT
  Age: 74 Year

DRUGS (1)
  1. KYMRIAH [Suspect]
     Active Substance: TISAGENLECLEUCEL
     Indication: Diffuse large B-cell lymphoma
     Dosage: 23 ML, ONCE/SINGLE
     Route: 042
     Dates: start: 20211207

REACTIONS (6)
  - Death [Fatal]
  - Hypotension [Unknown]
  - Chills [Unknown]
  - Pyrexia [Unknown]
  - Tachycardia [Unknown]
  - Infusion related reaction [Unknown]

NARRATIVE: CASE EVENT DATE: 20211207
